FAERS Safety Report 9583761 (Version 1)
Quarter: 2013Q4

REPORT INFORMATION
  Report Type: Spontaneous
  Country: US (occurrence: US)
  Receive Date: 20131002
  Receipt Date: 20131002
  Transmission Date: 20140711
  Serious: No
  Sender: FDA-Public Use
  Company Number: US-AMGEN-USASP2013048752

PATIENT
  Age: 41 Year
  Sex: Female
  Weight: 85.26 kg

DRUGS (3)
  1. ENBREL [Suspect]
     Indication: PRODUCT USED FOR UNKNOWN INDICATION
     Dosage: 50 MG, QWK
     Route: 058
  2. LEVOTHYROXINE [Concomitant]
     Dosage: 300 MUG, UNK
  3. FOLIC ACID [Concomitant]
     Dosage: UNK

REACTIONS (4)
  - Injection site pain [Unknown]
  - Injection site pruritus [Unknown]
  - Injection site vesicles [Unknown]
  - Injection site warmth [Unknown]
